FAERS Safety Report 7936604-9 (Version None)
Quarter: 2011Q4

REPORT INFORMATION
  Report Type: 
  Country: None (occurrence: None)
  Receive Date: 20111123
  Receipt Date: 20111110
  Transmission Date: 20120403
  Serious: Yes (Hospitalization)
  Sender: FDA-Public Use
  Company Number: FR-MYLANLABS-2011S1022629

PATIENT
  Age: 10 Year
  Sex: Female
  Weight: 49.6 kg

DRUGS (14)
  1. MORPHINE [Suspect]
     Indication: PRODUCT USED FOR UNKNOWN INDICATION
     Dates: start: 20111003, end: 20111005
  2. ETOPOSIDE [Concomitant]
     Indication: PRODUCT USED FOR UNKNOWN INDICATION
  3. PLITICAN [Concomitant]
     Indication: PRODUCT USED FOR UNKNOWN INDICATION
  4. AMOXICILLIN [Suspect]
     Indication: PRODUCT USED FOR UNKNOWN INDICATION
     Dates: start: 20111002, end: 20111008
  5. ZOFRAN [Concomitant]
  6. ZOFRAN [Concomitant]
     Indication: PRODUCT USED FOR UNKNOWN INDICATION
  7. ZOMETA [Concomitant]
     Indication: PRODUCT USED FOR UNKNOWN INDICATION
  8. METHOTREXATE [Suspect]
     Indication: BONE SARCOMA
     Route: 042
     Dates: end: 20110926
  9. IFOSFAMIDE [Suspect]
     Indication: BONE SARCOMA
     Dates: end: 20110901
  10. LEUCOVORIN CALCIUM [Concomitant]
     Indication: PRODUCT USED FOR UNKNOWN INDICATION
  11. ETOPOSIDE [Suspect]
     Indication: BONE SARCOMA
     Dates: end: 20110901
  12. NUBAIN [Suspect]
     Indication: PAIN
     Dates: start: 20110928, end: 20111003
  13. AMIKACIN [Suspect]
     Indication: PRODUCT USED FOR UNKNOWN INDICATION
     Dates: start: 20111002, end: 20111008
  14. UROMITEXAN [Concomitant]
     Indication: PRODUCT USED FOR UNKNOWN INDICATION

REACTIONS (4)
  - MUCOSAL INFLAMMATION [None]
  - HYPERPYREXIA [None]
  - LEUKOENCEPHALOPATHY [None]
  - LEUKOPENIA [None]
